FAERS Safety Report 5833311-3 (Version None)
Quarter: 2008Q3

REPORT INFORMATION
  Report Type: 
  Country: None (occurrence: None)
  Receive Date: 20080805
  Receipt Date: 20080723
  Transmission Date: 20090109
  Serious: Yes (Death, Other)
  Sender: FDA-Public Use
  Company Number: GB-PFIZER INC-2008031918

PATIENT
  Sex: Male
  Weight: 72 kg

DRUGS (2)
  1. CHANTIX [Suspect]
     Route: 048
  2. OMEPRAZOLE [Concomitant]
     Route: 048

REACTIONS (9)
  - ARTERIOSCLEROSIS CORONARY ARTERY [None]
  - BRAIN HYPOXIA [None]
  - CARDIAC VENTRICULAR DISORDER [None]
  - CARDIOMEGALY [None]
  - COMPLETED SUICIDE [None]
  - ERECTILE DYSFUNCTION [None]
  - GRANULOMATOUS LIVER DISEASE [None]
  - NAUSEA [None]
  - SLEEP DISORDER [None]
